FAERS Safety Report 20361813 (Version 1)
Quarter: 2022Q1

REPORT INFORMATION
  Report Type: Spontaneous
  Country: CN (occurrence: CN)
  Receive Date: 20220121
  Receipt Date: 20220121
  Transmission Date: 20220423
  Serious: Yes (Life-Threatening, Other)
  Sender: FDA-Public Use
  Company Number: CN-NOVARTISPH-NVSC2022CN011366

PATIENT
  Age: 70 Year
  Sex: Male

DRUGS (1)
  1. ACLASTA [Suspect]
     Active Substance: ZOLEDRONIC ACID
     Indication: Product used for unknown indication
     Dosage: UNK
     Route: 065
     Dates: start: 20220112

REACTIONS (4)
  - Choking [Unknown]
  - Gastrooesophageal reflux disease [Unknown]
  - Syncope [Unknown]
  - Tremor [Unknown]

NARRATIVE: CASE EVENT DATE: 20220112
